FAERS Safety Report 8067708-0 (Version None)
Quarter: 2012Q1

REPORT INFORMATION
  Report Type: 
  Country: None (occurrence: None)
  Receive Date: 20120124
  Receipt Date: 20120119
  Transmission Date: 20120608
  Serious: Yes (Other)
  Sender: FDA-Public Use
  Company Number: US-PFIZER INC-2011300830

PATIENT
  Sex: Male

DRUGS (13)
  1. GLIMEPIRIDE [Concomitant]
     Dosage: UNK
  2. LIPITOR [Suspect]
     Dosage: 80 MG, 1X/DAY (1 TAB DAILY)
  3. METFORMIN [Concomitant]
     Dosage: UNK
  4. SPIRONOLACTONE [Concomitant]
     Dosage: UNK
  5. LOSARTAN [Concomitant]
     Dosage: UNK
  6. POTASSIUM [Concomitant]
     Dosage: UNK
  7. WARFARIN SODIUM [Concomitant]
     Dosage: UNK
  8. MAG-OX [Concomitant]
     Dosage: UNK
  9. ALLOPURINOL [Concomitant]
     Dosage: UNK
  10. LEXAPRO [Concomitant]
     Dosage: UNK
  11. PLAVIX [Concomitant]
     Dosage: UNK
  12. JANUVIA [Concomitant]
     Dosage: UNK
  13. FUROSIDE [Concomitant]
     Dosage: UNK

REACTIONS (1)
  - HYPOACUSIS [None]
